FAERS Safety Report 10367477 (Version 2)
Quarter: 2014Q3

REPORT INFORMATION
  Report Type: Report from Study
  Country: US (occurrence: US)
  Receive Date: 20140807
  Receipt Date: 20140825
  Transmission Date: 20150326
  Serious: Yes (Death, Hospitalization)
  Sender: FDA-Public Use
  Company Number: PHEH2014US015603

PATIENT
  Sex: Male

DRUGS (14)
  1. ONDANSETRON [Suspect]
     Active Substance: ONDANSETRON
     Indication: NAUSEA
     Dosage: 1 DF, Q8H AS NEEDED
     Dates: start: 20130808
  2. GLIPIZIDE. [Suspect]
     Active Substance: GLIPIZIDE
     Dosage: 10 MG, BID
     Route: 048
     Dates: start: 20130624
  3. MULTI-VIT [Suspect]
     Active Substance: VITAMINS
     Dosage: 1 DF, QD
     Route: 048
     Dates: start: 20130624
  4. OXYGEN. [Concomitant]
     Active Substance: OXYGEN
     Dosage: 2 L, PER MIN PRN
     Dates: start: 20130624
  5. ADVAIR HFA [Concomitant]
     Active Substance: FLUTICASONE PROPIONATE\SALMETEROL XINAFOATE
     Dosage: 250/50 MG BID
  6. TASIGNA [Suspect]
     Active Substance: NILOTINIB
     Indication: CHRONIC MYELOID LEUKAEMIA
     Dosage: 300 MG, BID
     Route: 048
     Dates: start: 20130729
  7. ASPIRIN. [Concomitant]
     Active Substance: ASPIRIN
     Dosage: 81 MG, DAILY
  8. COUMADIN [Suspect]
     Active Substance: WARFARIN SODIUM
     Dates: start: 20130624
  9. FUROSEMIDE. [Suspect]
     Active Substance: FUROSEMIDE
     Dosage: 40 MG IN THE AM AND IN PM
     Route: 048
     Dates: start: 20130624
  10. DILTIAZEM [Suspect]
     Active Substance: DILTIAZEM
     Dosage: 180 MG, QD
     Route: 048
     Dates: start: 20130624
  11. METOPROLOL [Suspect]
     Active Substance: METOPROLOL
     Dosage: 100 MG, DAILY
     Route: 048
     Dates: start: 20130624
  12. SPIRIVA [Suspect]
     Active Substance: TIOTROPIUM BROMIDE MONOHYDRATE
     Dosage: 2PUFFS TWICE DAILY PRN
     Dates: start: 20130624
  13. FENOFIBRATE. [Suspect]
     Active Substance: FENOFIBRATE
     Dosage: 150 MG, QD
     Route: 048
     Dates: start: 20130624
  14. PRAVASTATIN [Suspect]
     Active Substance: PRAVASTATIN\PRAVASTATIN SODIUM
     Dosage: 10 MG, QD AT BED TIME
     Route: 048
     Dates: start: 20130624

REACTIONS (5)
  - Cardiac arrest [Fatal]
  - Fall [Fatal]
  - Skull fracture [Fatal]
  - Haemorrhage intracranial [Fatal]
  - Head injury [Fatal]
